FAERS Safety Report 17871961 (Version 1)
Quarter: 2020Q2

REPORT INFORMATION
  Report Type: Spontaneous
  Country: US (occurrence: US)
  Receive Date: 20200608
  Receipt Date: 20200608
  Transmission Date: 20200714
  Serious: No
  Sender: FDA-Public Use
  Company Number: US-KRAMERLABS-2020-US-007974

PATIENT
  Sex: Male

DRUGS (1)
  1. NIZORAL A-D [Suspect]
     Active Substance: KETOCONAZOLE
     Indication: PRODUCT USED FOR UNKNOWN INDICATION
     Dosage: 1X
     Route: 061
     Dates: start: 20200417, end: 20200417

REACTIONS (1)
  - Pruritus [Not Recovered/Not Resolved]

NARRATIVE: CASE EVENT DATE: 20200417
